FAERS Safety Report 9493763 (Version 2)
Quarter: 2013Q3

REPORT INFORMATION
  Report Type: Spontaneous
  Country: BE (occurrence: BE)
  Receive Date: 20130902
  Receipt Date: 20130904
  Transmission Date: 20140515
  Serious: Yes (Hospitalization, Other)
  Sender: FDA-Public Use
  Company Number: BE-JNJFOC-20130815190

PATIENT
  Age: 87 Year
  Sex: Female
  Weight: 75 kg

DRUGS (9)
  1. XARELTO [Suspect]
     Indication: ATRIAL FIBRILLATION
     Route: 048
     Dates: start: 20130807, end: 20130810
  2. XARELTO [Suspect]
     Indication: CEREBROVASCULAR ACCIDENT PROPHYLAXIS
     Route: 048
     Dates: start: 20130807, end: 20130810
  3. BICLAR [Suspect]
     Indication: INFECTION
     Route: 042
     Dates: start: 20130805, end: 20130806
  4. BICLAR [Suspect]
     Indication: INFECTION
     Route: 048
     Dates: start: 20130807, end: 20130814
  5. AUGMENTIN [Concomitant]
     Indication: INFECTION
     Route: 042
     Dates: start: 20130805, end: 20130814
  6. CHLOROPOTASSURIL [Concomitant]
     Indication: SUPPLEMENTATION THERAPY
     Route: 048
     Dates: start: 20130806, end: 20130809
  7. EMCONCOR [Concomitant]
     Indication: ARRHYTHMIA
     Route: 048
     Dates: start: 20130806, end: 20130816
  8. EMCONCOR [Concomitant]
     Indication: HYPERTENSION
     Route: 048
     Dates: start: 20130806, end: 20130816
  9. LITICAN [Concomitant]
     Indication: NAUSEA
     Route: 042
     Dates: start: 20130806, end: 20130819

REACTIONS (1)
  - Hepatitis toxic [Recovering/Resolving]
